FAERS Safety Report 17997356 (Version 1)
Quarter: 2020Q3

REPORT INFORMATION
  Report Type: Spontaneous
  Country: CA (occurrence: CA)
  Receive Date: 20200708
  Receipt Date: 20200708
  Transmission Date: 20201103
  Serious: Yes (Life-Threatening)
  Sender: FDA-Public Use
  Company Number: CA-ELI_LILLY_AND_COMPANY-CA202007001953

PATIENT
  Sex: Male

DRUGS (1)
  1. PROZAC [Suspect]
     Active Substance: FLUOXETINE HYDROCHLORIDE
     Indication: PRODUCT USED FOR UNKNOWN INDICATION
     Dosage: UNK UNK, UNKNOWN
     Route: 048

REACTIONS (8)
  - Agitation [Unknown]
  - Mobility decreased [Unknown]
  - Muscle spasms [Unknown]
  - Muscle rigidity [Unknown]
  - Delirium [Unknown]
  - Bone disorder [Unknown]
  - Mental status changes [Unknown]
  - Suicide attempt [Unknown]
